FAERS Safety Report 9793033 (Version 2)
Quarter: 2014Q1

REPORT INFORMATION
  Report Type: Spontaneous
  Country: FR (occurrence: FR)
  Receive Date: 20140102
  Receipt Date: 20140107
  Transmission Date: 20141002
  Serious: Yes (Hospitalization)
  Sender: FDA-Public Use
  Company Number: FR-PFIZER INC-2013371228

PATIENT
  Age: 56 Year
  Sex: Female

DRUGS (2)
  1. SOLU-MEDROL [Suspect]
     Dosage: 1 MG/KG, UNK
     Route: 042
     Dates: start: 201306, end: 201306
  2. SOLUPRED [Suspect]
     Dosage: 1 MG/KG, UNK
     Route: 048
     Dates: start: 201306, end: 201306

REACTIONS (1)
  - Adrenal insufficiency [Not Recovered/Not Resolved]
